FAERS Safety Report 24935414 (Version 1)
Quarter: 2025Q1

REPORT INFORMATION
  Report Type: Spontaneous
  Country: CN (occurrence: None)
  Receive Date: 20250206
  Receipt Date: 20250206
  Transmission Date: 20250409
  Serious: Yes (Hospitalization)
  Sender: ENCUBE ETHICALS
  Company Number: CN-Encube-001633

PATIENT
  Age: 72 Year
  Sex: Male

DRUGS (3)
  1. LIDOCAINE [Suspect]
     Active Substance: LIDOCAINE
     Indication: Local anaesthesia
     Dates: start: 20240505, end: 20240505
  2. TETANUS ANTITOXIN [Suspect]
     Active Substance: TETANUS ANTITOXIN
     Indication: Tetanus
     Dates: start: 20240505, end: 20240505
  3. LIDOCAINE [Suspect]
     Active Substance: LIDOCAINE
     Indication: Suture insertion
     Dates: start: 20240505, end: 20240505

REACTIONS (3)
  - Anaphylactic shock [Recovered/Resolved]
  - Drug interaction [Unknown]
  - Off label use [Unknown]
